FAERS Safety Report 18711407 (Version 1)
Quarter: 2021Q1

REPORT INFORMATION
  Report Type: Spontaneous
  Country: US (occurrence: US)
  Receive Date: 20210106
  Receipt Date: 20210106
  Transmission Date: 20210419
  Serious: Yes (Hospitalization)
  Sender: FDA-Public Use
  Company Number: None

PATIENT
  Age: 55 Year
  Sex: Male
  Weight: 110 kg

DRUGS (11)
  1. AFINITOR [Suspect]
     Active Substance: EVEROLIMUS
     Indication: RENAL CANCER
     Route: 048
     Dates: start: 20201019, end: 20210106
  2. ZOLPIDEM TARTRATE ER [Concomitant]
     Active Substance: ZOLPIDEM TARTRATE
  3. DEXAMETHASONE. [Suspect]
     Active Substance: DEXAMETHASONE
     Indication: RENAL CANCER
     Route: 048
     Dates: start: 20201019, end: 20210106
  4. LENVIMA 18 MG DAILY DOSE PK [Concomitant]
  5. CIPRO [Concomitant]
     Active Substance: CIPROFLOXACIN HYDROCHLORIDE
  6. AMLODIPINE BESYLATE. [Concomitant]
     Active Substance: AMLODIPINE BESYLATE
  7. PREDNISONE. [Concomitant]
     Active Substance: PREDNISONE
  8. BREO ELLIPTA [Concomitant]
     Active Substance: FLUTICASONE FUROATE\VILANTEROL TRIFENATATE
  9. PREDNISONE. [Concomitant]
     Active Substance: PREDNISONE
  10. MULTI VITAMIN [Concomitant]
     Active Substance: VITAMINS
  11. HYDROCORTISONE. [Concomitant]
     Active Substance: HYDROCORTISONE

REACTIONS (5)
  - Rash [None]
  - Dyspnoea [None]
  - Abdominal pain [None]
  - Vomiting [None]
  - Toxicity to various agents [None]

NARRATIVE: CASE EVENT DATE: 20210106
